FAERS Safety Report 9975828 (Version 1)
Quarter: 2014Q1

REPORT INFORMATION
  Report Type: Spontaneous
  Country: GB (occurrence: GB)
  Receive Date: 20140306
  Receipt Date: 20140306
  Transmission Date: 20141002
  Serious: Yes (Other)
  Sender: FDA-Public Use
  Company Number: GB-TEVA-464616ISR

PATIENT
  Age: 65 Year
  Sex: Male

DRUGS (1)
  1. TRAZODONE [Suspect]
     Indication: PRODUCT USED FOR UNKNOWN INDICATION

REACTIONS (5)
  - Suicidal ideation [Unknown]
  - Paranoia [Unknown]
  - Myalgia [Unknown]
  - Myalgia [Unknown]
  - Agitation [Unknown]
